FAERS Safety Report 6142656-1 (Version None)
Quarter: 2009Q2

REPORT INFORMATION
  Report Type: 
  Country: None (occurrence: None)
  Receive Date: 20090403
  Receipt Date: 20090326
  Transmission Date: 20091009
  Serious: Yes (Hospitalization)
  Sender: FDA-Public Use
  Company Number: US-WYE-H08728009

PATIENT
  Age: 78 Year
  Sex: Female
  Weight: 60.38 kg

DRUGS (1)
  1. PRISTIQ [Suspect]
     Dosage: 50 MG, FREQUENCY UNKNOWN
     Route: 048

REACTIONS (1)
  - MYALGIA [None]
